FAERS Safety Report 6393904-4 (Version None)
Quarter: 2009Q4

REPORT INFORMATION
  Report Type: 
  Country: None (occurrence: None)
  Receive Date: 20091008
  Receipt Date: 20091001
  Transmission Date: 20100525
  Serious: Yes (Hospitalization, Other)
  Sender: FDA-Public Use
  Company Number: GB-AVENTIS-200916009GDDC

PATIENT
  Age: 39 Year
  Sex: Female

DRUGS (4)
  1. ARAVA [Suspect]
     Indication: RHEUMATOID ARTHRITIS
     Route: 048
     Dates: start: 20060601, end: 20090501
  2. ARCOXIA [Concomitant]
     Route: 048
     Dates: start: 20080101
  3. TRAMADOL [Concomitant]
     Dosage: DOSE: APPROXIMATELY 3/DAY
     Route: 048
  4. AMITYIPTYLINE [Concomitant]
     Dosage: DOSE: UNK

REACTIONS (3)
  - CONFUSIONAL STATE [None]
  - ENCEPHALOPATHY [None]
  - HEPATIC ENZYME INCREASED [None]
